FAERS Safety Report 11131163 (Version 1)
Quarter: 2015Q2

REPORT INFORMATION
  Report Type: Spontaneous
  Country: IN (occurrence: None)
  Receive Date: 20150521
  Receipt Date: 20150521
  Transmission Date: 20150821
  Serious: Yes (Other)
  Sender: FDA-Public Use
  Company Number: None

PATIENT
  Age: 30 Year
  Sex: Male
  Weight: 95 kg

DRUGS (2)
  1. ATOCOR [Suspect]
     Active Substance: ATORVASTATIN
     Indication: HYPERCHOLESTEROLAEMIA
     Dosage: 1 TAB HS  QHS/BEDTIME ORAL
     Route: 048
  2. ATOCOR [Suspect]
     Active Substance: ATORVASTATIN
     Indication: OBESITY
     Dosage: 1 TAB HS  QHS/BEDTIME ORAL
     Route: 048

REACTIONS (4)
  - Neck pain [None]
  - Rash [None]
  - Erythema [None]
  - Ear pain [None]

NARRATIVE: CASE EVENT DATE: 20150423
